FAERS Safety Report 11349701 (Version 2)
Quarter: 2015Q4

REPORT INFORMATION
  Report Type: Report from Study
  Country: NO (occurrence: NO)
  Receive Date: 20150807
  Receipt Date: 20151001
  Transmission Date: 20160304
  Serious: Yes (Other)
  Sender: FDA-Public Use
  Company Number: NO-BAYER-2015-390493

PATIENT
  Age: 48 Year
  Sex: Female

DRUGS (2)
  1. VAGIFEM [Concomitant]
     Active Substance: ESTRADIOL
     Indication: VAGINITIS BACTERIAL
     Dosage: UNK
     Dates: start: 2015
  2. MIRENA [Suspect]
     Active Substance: LEVONORGESTREL
     Dosage: 20 MCG/24HR, CONT
     Route: 015
     Dates: start: 201505, end: 2015

REACTIONS (5)
  - Procedural haemorrhage [None]
  - Procedural pain [None]
  - Post procedural discomfort [None]
  - Post procedural inflammation [Recovered/Resolved]
  - Abdominal pain upper [None]

NARRATIVE: CASE EVENT DATE: 2015
